FAERS Safety Report 4280570-7 (Version None)
Quarter: 2004Q1

REPORT INFORMATION
  Report Type: 
  Country: None (occurrence: None)
  Receive Date: 20040127
  Receipt Date: 20040114
  Transmission Date: 20041129
  Serious: Yes (Hospitalization)
  Sender: FDA-Public Use
  Company Number: 2004002715

PATIENT
  Age: 80 Year
  Sex: Female

DRUGS (4)
  1. ATARAX [Suspect]
     Indication: ILL-DEFINED DISORDER
     Dosage: ORAL
     Route: 048
     Dates: start: 20021201, end: 20031128
  2. VALSARTAN (VALSARTAN) [Suspect]
     Indication: ILL-DEFINED DISORDER
     Dosage: TWICE (DAILY), ORAL
     Route: 048
     Dates: start: 20021201, end: 20031128
  3. LERCANIDIPINE [Suspect]
     Indication: ILL-DEFINED DISORDER
     Dosage: ONCE (DAILY), ORAL
     Route: 048
     Dates: start: 20021201, end: 20031128
  4. PRAVASTATIN SODIUM [Suspect]
     Indication: ILL-DEFINED DISORDER
     Dosage: ONCE (DAILY), ORAL
     Route: 048
     Dates: start: 20021201, end: 20031128

REACTIONS (1)
  - ECZEMA [None]
